FAERS Safety Report 8428496-9 (Version None)
Quarter: 2012Q2

REPORT INFORMATION
  Report Type: 
  Country: None (occurrence: None)
  Receive Date: 20120612
  Receipt Date: 20120606
  Transmission Date: 20120825
  Serious: No
  Sender: FDA-Public Use
  Company Number: US-PFIZER INC-2012136122

PATIENT
  Sex: Female

DRUGS (1)
  1. IBUPROFEN (ADVIL) [Suspect]
     Dosage: UNK
     Route: 048

REACTIONS (6)
  - SWELLING FACE [None]
  - MIGRAINE [None]
  - HYPOAESTHESIA [None]
  - MUSCLE RIGIDITY [None]
  - ADVERSE DRUG REACTION [None]
  - MUSCULOSKELETAL DISCOMFORT [None]
